FAERS Safety Report 7937234-5 (Version None)
Quarter: 2011Q4

REPORT INFORMATION
  Report Type: 
  Country: None (occurrence: None)
  Receive Date: 20111123
  Receipt Date: 20111111
  Transmission Date: 20120403
  Serious: Yes (Hospitalization)
  Sender: FDA-Public Use
  Company Number: ZW-VIIV HEALTHCARE LIMITED-B0764096A

PATIENT
  Sex: Male
  Weight: 64.3 kg

DRUGS (4)
  1. COMBIVIR [Suspect]
     Indication: PROPHYLAXIS AGAINST HIV INFECTION
     Dosage: 450MG TWICE PER DAY
     Route: 048
     Dates: start: 20080701
  2. GLYBURIDE [Concomitant]
     Dosage: 5MG PER DAY
  3. NEVIRAPINE [Suspect]
     Indication: PROPHYLAXIS AGAINST HIV INFECTION
     Dosage: 200MG TWICE PER DAY
     Route: 048
     Dates: start: 20080701
  4. METFORMIN [Concomitant]
     Dosage: 500MG THREE TIMES PER DAY

REACTIONS (1)
  - DIABETES MELLITUS [None]
